FAERS Safety Report 6178845-X (Version None)
Quarter: 2009Q2

REPORT INFORMATION
  Report Type: 
  Country: None (occurrence: None)
  Receive Date: 20090504
  Receipt Date: 20090401
  Transmission Date: 20091009
  Serious: No
  Sender: FDA-Public Use
  Company Number: US-ALEXION-A200900270

PATIENT
  Sex: Female

DRUGS (3)
  1. SOLIRIS [Suspect]
     Indication: PAROXYSMAL NOCTURNAL HAEMOGLOBINURIA
     Dosage: 1200 MG
     Route: 042
  2. SOLIRIS [Suspect]
     Dosage: 1200 MG
     Route: 042
  3. SOLIRIS [Suspect]
     Dosage: 900 MG

REACTIONS (3)
  - CHILLS [None]
  - NAUSEA [None]
  - PYREXIA [None]
